FAERS Safety Report 24567218 (Version 1)
Quarter: 2024Q4

REPORT INFORMATION
  Report Type: Report from Study
  Country: US (occurrence: US)
  Receive Date: 20241030
  Receipt Date: 20241030
  Transmission Date: 20250115
  Serious: Yes (Death, Other)
  Sender: JAZZ
  Company Number: US-JAZZ PHARMACEUTICALS-2024-US-019683

PATIENT
  Age: 13 Year
  Sex: Male

DRUGS (1)
  1. EPIDIOLEX [Suspect]
     Active Substance: CANNABIDIOL
     Indication: Severe myoclonic epilepsy of infancy
     Dosage: 2.5 MILLILITER, BID VIA G-TUBE
     Dates: start: 202402, end: 20241025

REACTIONS (1)
  - Death [Fatal]

NARRATIVE: CASE EVENT DATE: 20241025
